FAERS Safety Report 21506247 (Version 4)
Quarter: 2023Q4

REPORT INFORMATION
  Report Type: Spontaneous
  Country: PL (occurrence: PL)
  Receive Date: 20221026
  Receipt Date: 20231219
  Transmission Date: 20240110
  Serious: Yes (Hospitalization, Other)
  Sender: FDA-Public Use
  Company Number: PL-002147023-PHHY2018PL068707

PATIENT
  Age: 17 Year
  Sex: Female

DRUGS (9)
  1. ACETAMINOPHEN [Interacting]
     Active Substance: ACETAMINOPHEN
     Indication: Pain
     Dosage: 1500 MILLIGRAM, ONCE A DAY,(500 MG, TID )
     Route: 048
  2. ACETAMINOPHEN [Interacting]
     Active Substance: ACETAMINOPHEN
     Indication: Injury
  3. ACETAMINOPHEN [Interacting]
     Active Substance: ACETAMINOPHEN
     Indication: Back pain
  4. DICLOFENAC [Suspect]
     Active Substance: DICLOFENAC
     Indication: Pain
     Dosage: 200 MILLIGRAM, ONCE A DAY,(100 MG, BID )
     Route: 065
  5. DICLOFENAC [Suspect]
     Active Substance: DICLOFENAC
     Indication: Back pain
     Dosage: 50 MILLIGRAM, ONCE A DAY,(50 MG, QD ) AS NECESSARY
     Route: 065
  6. DICLOFENAC [Suspect]
     Active Substance: DICLOFENAC
     Dosage: 100 MILLIGRAM, ONCE A DAY,(50 MG, BID )
     Route: 065
  7. KETOPROFEN [Suspect]
     Active Substance: KETOPROFEN
     Indication: Back pain
     Dosage: 200 MILLIGRAM, ONCE A DAY,(100 MG, BID )
     Route: 065
  8. KETOPROFEN [Suspect]
     Active Substance: KETOPROFEN
     Indication: Pain
     Dosage: 100 MILLIGRAM, ONCE A DAY (100 MG, BID )
     Route: 065
  9. KETOPROFEN [Suspect]
     Active Substance: KETOPROFEN
     Indication: Injury

REACTIONS (24)
  - Renal impairment [Recovering/Resolving]
  - Dry mouth [Recovering/Resolving]
  - Pallor [Recovering/Resolving]
  - Dehydration [Recovering/Resolving]
  - Acute kidney injury [Recovered/Resolved]
  - Urinary retention [Recovering/Resolving]
  - Nausea [Recovering/Resolving]
  - Chromaturia [Recovering/Resolving]
  - Respiratory rate increased [Recovering/Resolving]
  - Emotional distress [Recovering/Resolving]
  - Abdominal tenderness [Recovering/Resolving]
  - Urinary hesitation [Recovering/Resolving]
  - Skin turgor decreased [Recovering/Resolving]
  - Nerve compression [Recovering/Resolving]
  - Staphylococcal sepsis [Recovered/Resolved]
  - Subcutaneous abscess [Recovering/Resolving]
  - Staphylococcal infection [Recovering/Resolving]
  - Inflammation [Recovering/Resolving]
  - Drug interaction [Unknown]
  - Asthenia [Recovering/Resolving]
  - Back pain [Recovering/Resolving]
  - Pyrexia [Recovering/Resolving]
  - Tenderness [Recovering/Resolving]
  - Condition aggravated [Recovering/Resolving]
